FAERS Safety Report 19276161 (Version 3)
Quarter: 2021Q2

REPORT INFORMATION
  Report Type: Report from Study
  Country: US (occurrence: US)
  Receive Date: 20210519
  Receipt Date: 20210625
  Transmission Date: 20210717
  Serious: Yes (Hospitalization, Other)
  Sender: FDA-Public Use
  Company Number: US-BRISTOL-MYERS SQUIBB COMPANY-BMS-2021-047673

PATIENT
  Age: 54 Year
  Sex: Male
  Weight: 85.1 kg

DRUGS (2)
  1. NIVOLUMAB [Suspect]
     Active Substance: NIVOLUMAB
     Indication: COLORECTAL ADENOCARCINOMA
     Dosage: 240 MILLIGRAM, Q2WK
     Route: 042
     Dates: start: 20210414, end: 20210428
  2. IPILIMUMAB [Suspect]
     Active Substance: IPILIMUMAB
     Indication: COLORECTAL ADENOCARCINOMA
     Dosage: 83 MILLIGRAM, Q6WK
     Route: 042
     Dates: start: 20210414

REACTIONS (1)
  - Abdominal infection [Unknown]

NARRATIVE: CASE EVENT DATE: 20210506
